FAERS Safety Report 19926825 (Version 1)
Quarter: 2021Q4

REPORT INFORMATION
  Report Type: Spontaneous
  Country: JP (occurrence: JP)
  Receive Date: 20211007
  Receipt Date: 20211007
  Transmission Date: 20220303
  Serious: Yes (Other)
  Sender: FDA-Public Use
  Company Number: JP-SAKK-2021SA327306AA

PATIENT
  Age: 33 Year
  Sex: Female

DRUGS (2)
  1. DUPIXENT [Suspect]
     Active Substance: DUPILUMAB
     Indication: Chronic eosinophilic rhinosinusitis
     Route: 058
  2. OMALIZUMAB [Concomitant]
     Active Substance: OMALIZUMAB
     Indication: Aspirin-exacerbated respiratory disease
     Route: 065

REACTIONS (5)
  - Bipolar II disorder [Unknown]
  - Bipolar I disorder [Unknown]
  - Mania [Unknown]
  - Intentional self-injury [Unknown]
  - Drug dependence [Unknown]
